FAERS Safety Report 20104612 (Version 3)
Quarter: 2021Q4

REPORT INFORMATION
  Report Type: Report from Study
  Country: US (occurrence: US)
  Receive Date: 20211123
  Receipt Date: 20211221
  Transmission Date: 20220303
  Serious: Yes (Hospitalization)
  Sender: FDA-Public Use
  Company Number: US-JNJFOC-20211136013

PATIENT
  Age: 51 Year
  Sex: Female
  Weight: 74.1 kg

DRUGS (2)
  1. EPOPROSTENOL SODIUM [Suspect]
     Active Substance: EPOPROSTENOL SODIUM
     Indication: Pulmonary arterial hypertension
     Dosage: VELETRI 1.5 MG VIAL INTRAVENOUS CONTINUOUS
     Route: 042
  2. WARFARIN [Concomitant]
     Active Substance: WARFARIN

REACTIONS (3)
  - Device occlusion [Unknown]
  - Lung disorder [Unknown]
  - Underdose [Unknown]

NARRATIVE: CASE EVENT DATE: 20211114
